FAERS Safety Report 20535690 (Version 1)
Quarter: 2022Q1

REPORT INFORMATION
  Report Type: Report from Study
  Country: CN (occurrence: CN)
  Receive Date: 20220302
  Receipt Date: 20220302
  Transmission Date: 20220423
  Serious: Yes (Other)
  Sender: FDA-Public Use
  Company Number: CN-JNJFOC-20210935939

PATIENT

DRUGS (36)
  1. DARUNAVIR [Suspect]
     Active Substance: DARUNAVIR
     Indication: Product used for unknown indication
     Route: 048
  2. DARUNAVIR [Suspect]
     Active Substance: DARUNAVIR
     Indication: COVID-19
  3. CHLOROQUINE [Suspect]
     Active Substance: CHLOROQUINE
     Indication: Product used for unknown indication
     Route: 065
  4. CHLOROQUINE [Suspect]
     Active Substance: CHLOROQUINE
     Indication: COVID-19
  5. HYDROXYCHLOROQUINE [Suspect]
     Active Substance: HYDROXYCHLOROQUINE
     Indication: Product used for unknown indication
     Route: 065
  6. HYDROXYCHLOROQUINE [Suspect]
     Active Substance: HYDROXYCHLOROQUINE
     Indication: COVID-19
  7. LOPINAVIR [Suspect]
     Active Substance: LOPINAVIR
     Indication: Product used for unknown indication
     Route: 065
  8. LOPINAVIR [Suspect]
     Active Substance: LOPINAVIR
     Indication: COVID-19
  9. RITONAVIR [Suspect]
     Active Substance: RITONAVIR
     Indication: Product used for unknown indication
     Route: 065
  10. RITONAVIR [Suspect]
     Active Substance: RITONAVIR
     Indication: COVID-19
  11. RIBAVIRIN [Suspect]
     Active Substance: RIBAVIRIN
     Indication: Product used for unknown indication
     Route: 065
  12. RIBAVIRIN [Suspect]
     Active Substance: RIBAVIRIN
     Indication: COVID-19
  13. UMIFENOVIR [Suspect]
     Active Substance: UMIFENOVIR
     Indication: Product used for unknown indication
     Route: 065
  14. UMIFENOVIR [Suspect]
     Active Substance: UMIFENOVIR
     Indication: COVID-19
  15. TOCILIZUMAB [Suspect]
     Active Substance: TOCILIZUMAB
     Indication: Product used for unknown indication
     Route: 065
  16. TOCILIZUMAB [Suspect]
     Active Substance: TOCILIZUMAB
     Indication: COVID-19
  17. SARILUMAB [Suspect]
     Active Substance: SARILUMAB
     Indication: Product used for unknown indication
     Route: 065
  18. SARILUMAB [Suspect]
     Active Substance: SARILUMAB
     Indication: COVID-19
  19. FAVIPIRAVIR [Suspect]
     Active Substance: FAVIPIRAVIR
     Indication: Product used for unknown indication
     Route: 065
  20. FAVIPIRAVIR [Suspect]
     Active Substance: FAVIPIRAVIR
     Indication: COVID-19
  21. AZITHROMYCIN [Suspect]
     Active Substance: AZITHROMYCIN
     Indication: Product used for unknown indication
     Route: 065
  22. AZITHROMYCIN [Suspect]
     Active Substance: AZITHROMYCIN
     Indication: COVID-19
  23. MOXIFLOXACIN [Suspect]
     Active Substance: MOXIFLOXACIN
     Indication: Product used for unknown indication
     Route: 065
  24. MOXIFLOXACIN [Suspect]
     Active Substance: MOXIFLOXACIN
     Indication: COVID-19
  25. CEFTRIAXONE [Suspect]
     Active Substance: CEFTRIAXONE
     Indication: Product used for unknown indication
     Route: 065
  26. CEFTRIAXONE [Suspect]
     Active Substance: CEFTRIAXONE
     Indication: COVID-19
  27. PIPERACETAZINE [Suspect]
     Active Substance: PIPERACETAZINE
     Indication: Product used for unknown indication
     Route: 065
  28. PIPERACETAZINE [Suspect]
     Active Substance: PIPERACETAZINE
     Indication: COVID-19
  29. TAZOBACTAM [Suspect]
     Active Substance: TAZOBACTAM
     Indication: Product used for unknown indication
     Route: 065
  30. TAZOBACTAM [Suspect]
     Active Substance: TAZOBACTAM
     Indication: COVID-19
  31. AMPICILLIN [Suspect]
     Active Substance: AMPICILLIN
     Indication: Product used for unknown indication
     Route: 065
  32. AMPICILLIN [Suspect]
     Active Substance: AMPICILLIN
     Indication: COVID-19
  33. SULBACTAM [Suspect]
     Active Substance: SULBACTAM
     Indication: Product used for unknown indication
     Route: 065
  34. SULBACTAM [Suspect]
     Active Substance: SULBACTAM
     Indication: COVID-19
  35. TOBRAMYCIN [Suspect]
     Active Substance: TOBRAMYCIN
     Indication: Product used for unknown indication
     Route: 065
  36. TOBRAMYCIN [Suspect]
     Active Substance: TOBRAMYCIN
     Indication: COVID-19

REACTIONS (4)
  - Myocardial infarction [Unknown]
  - Coronary artery disease [Unknown]
  - Off label use [Unknown]
  - Product use in unapproved indication [Unknown]
